FAERS Safety Report 5456490-9 (Version None)
Quarter: 2007Q3

REPORT INFORMATION
  Report Type: 
  Country: None (occurrence: None)
  Receive Date: 20070918
  Receipt Date: 20070430
  Transmission Date: 20080115
  Serious: Yes (Other)
  Sender: FDA-Public Use
  Company Number: US-ASTRAZENECA-2006UW25114

PATIENT
  Age: 42 Year
  Sex: Female
  Weight: 79.5 kg

DRUGS (3)
  1. SEROQUEL [Suspect]
     Indication: BIPOLAR DISORDER
     Route: 048
  2. GEODON [Concomitant]
     Dates: start: 20060101
  3. RISPERDAL [Concomitant]

REACTIONS (1)
  - PANCREATITIS [None]
